FAERS Safety Report 6504095-0 (Version None)
Quarter: 2009Q4

REPORT INFORMATION
  Report Type: 
  Country: None (occurrence: None)
  Receive Date: 20091216
  Receipt Date: 20091216
  Transmission Date: 20100525
  Serious: Yes (Other)
  Sender: FDA-Public Use
  Company Number: None

PATIENT
  Sex: Female
  Weight: 59.1 kg

DRUGS (1)
  1. LEVAQUIN [Suspect]
     Indication: URINARY TRACT INFECTION
     Dosage: LEVAQUIN 1 DAILY FOR ONLY 2 ORAL
     Route: 048
     Dates: start: 20091027, end: 20091028

REACTIONS (10)
  - ARTHRALGIA [None]
  - DRY EYE [None]
  - EOSINOPHILIA [None]
  - FATIGUE [None]
  - HYPERSENSITIVITY [None]
  - INSOMNIA [None]
  - MONOCYTOSIS [None]
  - MYALGIA [None]
  - TENDON PAIN [None]
  - VITAMIN D DEFICIENCY [None]
